FAERS Safety Report 4611687-2 (Version None)
Quarter: 2005Q2

REPORT INFORMATION
  Report Type: 
  Country: None (occurrence: None)
  Receive Date: 20050311
  Receipt Date: 20041203
  Transmission Date: 20051028
  Serious: No
  Sender: FDA-Public Use
  Company Number: 2004-BP-13283BP

PATIENT
  Age: 88 Year
  Sex: Male

DRUGS (4)
  1. SPIRIVA [Suspect]
     Indication: CHRONIC OBSTRUCTIVE PULMONARY DISEASE
     Dosage: 18 MCG (18 MCG), IH
     Route: 055
     Dates: start: 20041202, end: 20041203
  2. DILTIAZEM [Concomitant]
  3. AMIODARONE HCL [Concomitant]
  4. COREG [Concomitant]

REACTIONS (4)
  - CHEST PAIN [None]
  - DRY MOUTH [None]
  - FATIGUE [None]
  - VISION BLURRED [None]
